FAERS Safety Report 6305990-8 (Version None)
Quarter: 2009Q3

REPORT INFORMATION
  Report Type: 
  Country: None (occurrence: None)
  Receive Date: 20090810
  Receipt Date: 20090810
  Transmission Date: 20100115
  Serious: Yes (Life-Threatening, Hospitalization)
  Sender: FDA-Public Use
  Company Number: None

PATIENT
  Age: 53 Year
  Sex: Male
  Weight: 66.5 kg

DRUGS (1)
  1. IOPAMIDOL [Suspect]
     Indication: FISTULOGRAM
     Dosage: 30 ML ONCE IV
     Route: 042
     Dates: start: 20090728, end: 20090728

REACTIONS (3)
  - ANAPHYLACTIC REACTION [None]
  - CARDIO-RESPIRATORY ARREST [None]
  - CONTRAST MEDIA ALLERGY [None]
